FAERS Safety Report 10006995 (Version 2)
Quarter: 2014Q1

REPORT INFORMATION
  Report Type: Spontaneous
  Country: US (occurrence: US)
  Receive Date: 20140313
  Receipt Date: 20140313
  Transmission Date: 20141002
  Serious: No
  Sender: FDA-Public Use
  Company Number: US-GILEAD-2013-0068019

PATIENT
  Sex: Male

DRUGS (5)
  1. LETAIRIS [Suspect]
     Indication: PULMONARY HYPERTENSION
     Dosage: 10 MG, QD
     Dates: start: 20120831
  2. LETAIRIS [Suspect]
     Indication: ATRIAL SEPTAL DEFECT
  3. LETAIRIS [Suspect]
     Indication: UNEVALUABLE EVENT
  4. LETAIRIS [Suspect]
     Indication: HYPOXIA
  5. ADCIRCA [Concomitant]

REACTIONS (2)
  - Malaise [Unknown]
  - Nasopharyngitis [Unknown]
